FAERS Safety Report 15293480 (Version 1)
Quarter: 2018Q3

REPORT INFORMATION
  Report Type: Report from Study
  Country: MX (occurrence: MX)
  Receive Date: 20180820
  Receipt Date: 20180820
  Transmission Date: 20181010
  Serious: Yes (Death, Hospitalization, Other)
  Sender: FDA-Public Use
  Company Number: MX-BRISTOL-MYERS SQUIBB COMPANY-BMS-2015-028022

PATIENT
  Age: 35 Year
  Sex: Male

DRUGS (1)
  1. DASATINIB. [Suspect]
     Active Substance: DASATINIB
     Indication: CHRONIC MYELOID LEUKAEMIA
     Dosage: 100 MG, QD
     Route: 048
     Dates: start: 20140605

REACTIONS (6)
  - Leukaemia recurrent [Recovering/Resolving]
  - Malignant neoplasm progression [Unknown]
  - Sudden death [Fatal]
  - Pain [Unknown]
  - Asthenia [Unknown]
  - Pyrexia [Unknown]

NARRATIVE: CASE EVENT DATE: 20171026
